FAERS Safety Report 10525287 (Version 1)
Quarter: 2014Q4

REPORT INFORMATION
  Report Type: Spontaneous
  Country: US (occurrence: US)
  Receive Date: 20141017
  Receipt Date: 20141017
  Transmission Date: 20150528
  Serious: No
  Sender: FDA-Public Use
  Company Number: US-GLAXOSMITHKLINE-US2014000186

PATIENT
  Age: 74 Year
  Sex: Male

DRUGS (2)
  1. WALGREEN NICOTINE [Suspect]
     Active Substance: NICOTINE
  2. WALGREEN NICOTINE [Suspect]
     Active Substance: NICOTINE
     Indication: SMOKING CESSATION THERAPY
     Route: 062
     Dates: start: 20140919

REACTIONS (3)
  - Insomnia [Not Recovered/Not Resolved]
  - Abnormal dreams [Not Recovered/Not Resolved]
  - Cough [Not Recovered/Not Resolved]
